FAERS Safety Report 21694722 (Version 1)
Quarter: 2022Q4

REPORT INFORMATION
  Report Type: Spontaneous
  Country: US (occurrence: None)
  Receive Date: 20221206
  Receipt Date: 20221206
  Transmission Date: 20230113
  Serious: No
  Sender: FDA-Public Use
  Company Number: None

PATIENT
  Age: 71 Year
  Sex: Female

DRUGS (1)
  1. HUMIRA [Suspect]
     Active Substance: ADALIMUMAB
     Route: 058

REACTIONS (5)
  - Pyrexia [None]
  - Skin disorder [None]
  - Peripheral swelling [None]
  - Burning sensation [None]
  - Swelling [None]

NARRATIVE: CASE EVENT DATE: 20221129
